FAERS Safety Report 12276453 (Version 3)
Quarter: 2016Q2

REPORT INFORMATION
  Report Type: Report from Study
  Country: BG (occurrence: BG)
  Receive Date: 20160418
  Receipt Date: 20160519
  Transmission Date: 20160815
  Serious: Yes (Other)
  Sender: FDA-Public Use
  Company Number: BG-ASTELLAS-2016US014064

PATIENT
  Sex: Female
  Weight: 60 kg

DRUGS (8)
  1. ENPRIL [Concomitant]
     Indication: HYPERTENSION
     Route: 048
  2. ADENURIC [Concomitant]
     Active Substance: FEBUXOSTAT
     Indication: HYPERURICAEMIA
     Route: 048
  3. PREDNISOLONE. [Suspect]
     Active Substance: PREDNISOLONE
     Indication: IMMUNOSUPPRESSANT DRUG THERAPY
     Route: 065
     Dates: start: 19960408
  4. CARSIL [Concomitant]
     Indication: HEPATITIS C
     Route: 048
  5. ASPIRIN PROTECT [Concomitant]
     Active Substance: ASPIRIN
     Indication: THROMBOSIS PROPHYLAXIS
     Route: 048
  6. ATENOLOL. [Concomitant]
     Active Substance: ATENOLOL
     Indication: HYPERTENSION
     Route: 048
  7. TACROLIMUS. [Suspect]
     Active Substance: TACROLIMUS
     Indication: RENAL TRANSPLANT
     Route: 048
     Dates: start: 20100908
  8. TACROLIMUS. [Suspect]
     Active Substance: TACROLIMUS
     Dosage: 1.5- 2 MG  ONCE DAILY
     Route: 065
     Dates: start: 20150205

REACTIONS (1)
  - Toxicity to various agents [Recovered/Resolved]

NARRATIVE: CASE EVENT DATE: 20150720
